FAERS Safety Report 5993366-2 (Version None)
Quarter: 2008Q4

REPORT INFORMATION
  Report Type: 
  Country: None (occurrence: None)
  Receive Date: 20081212
  Receipt Date: 20081208
  Transmission Date: 20090506
  Serious: Yes (Other)
  Sender: FDA-Public Use
  Company Number: GB-ASTRAZENECA-2008GB02296

PATIENT
  Sex: Female

DRUGS (2)
  1. ARIMIDEX [Suspect]
     Indication: BREAST CANCER
     Route: 048
     Dates: start: 20080301
  2. ANTIBIOTICS [Concomitant]

REACTIONS (2)
  - OESOPHAGEAL HAEMORRHAGE [None]
  - OESOPHAGEAL ULCER [None]
